FAERS Safety Report 4801596-8 (Version None)
Quarter: 2005Q4

REPORT INFORMATION
  Report Type: 
  Country: None (occurrence: None)
  Receive Date: 20051011
  Receipt Date: 20050928
  Transmission Date: 20060501
  Serious: Yes (Life-Threatening, Hospitalization, Disabling)
  Sender: FDA-Public Use
  Company Number: HQ5637406DEC2002

PATIENT
  Age: 29 Year
  Sex: Male
  Weight: 113.5 kg

DRUGS (6)
  1. EFFEXOR XR [Suspect]
     Indication: MAJOR DEPRESSION
     Dosage: 37.5 MG, ORAL
     Route: 048
     Dates: start: 20011218, end: 20011221
  2. CANNABIS (CANNABIS) [Suspect]
     Dosage: INHALATION
     Route: 055
  3. CELEBREX [Suspect]
     Indication: BACK PAIN
     Dosage: 200 MG 1X PER 1 DAY
     Dates: start: 20011218
  4. METHADONE HCL [Suspect]
     Indication: BACK PAIN
     Dosage: 10 MG 3X PER 1 DAY
     Dates: start: 20011218
  5. PROTONIX [Suspect]
     Dosage: 40 MG 1X PER 1 DAY, ORAL
     Route: 048
     Dates: start: 20011218
  6. REMERON [Suspect]
     Indication: DEPRESSION
     Dosage: 15 MG 1X PER 1 DAY
     Dates: start: 20011218

REACTIONS (6)
  - BRAIN DAMAGE [None]
  - COMA [None]
  - CYANOSIS [None]
  - DRUG SCREEN POSITIVE [None]
  - FOAMING AT MOUTH [None]
  - RESPIRATORY FAILURE [None]
